FAERS Safety Report 9883563 (Version 1)
Quarter: 2014Q1

REPORT INFORMATION
  Report Type: Spontaneous
  Country: VE (occurrence: VE)
  Receive Date: 20140210
  Receipt Date: 20140210
  Transmission Date: 20141002
  Serious: Yes (Other)
  Sender: FDA-Public Use
  Company Number: VE-SUN PHARMACEUTICAL INDUSTRIES LTD-2014SUN00243

PATIENT
  Age: 35 Year
  Sex: Female

DRUGS (4)
  1. PANTOPRAZOLE [Suspect]
     Indication: GASTRITIS
     Route: 065
  2. DILTIAZEM [Concomitant]
     Route: 061
  3. MILAX [Concomitant]
  4. ALEVIAN DUO [Concomitant]
     Indication: ANAL FISSURE

REACTIONS (1)
  - Dermatitis exfoliative [Recovered/Resolved]
